FAERS Safety Report 8937934 (Version 1)
Quarter: 2012Q4

REPORT INFORMATION
  Report Type: 
  Country: TR (occurrence: TR)
  Receive Date: 20121203
  Receipt Date: 20121203
  Transmission Date: 20130627
  Serious: Yes (Death)
  Sender: FDA-Public Use
  Company Number: TR-ELI_LILLY_AND_COMPANY-TR201211007730

PATIENT

DRUGS (2)
  1. HUMULIN REGULAR [Suspect]
     Indication: GESTATIONAL DIABETES
     Dosage: UNK, unknown
     Route: 064
  2. HUMULIN NPH [Suspect]
     Indication: GESTATIONAL DIABETES
     Dosage: UNK, unknown

REACTIONS (2)
  - Stillbirth [Fatal]
  - Foetal exposure during pregnancy [Recovered/Resolved]
